FAERS Safety Report 6581368-7 (Version None)
Quarter: 2010Q1

REPORT INFORMATION
  Report Type: 
  Country: None (occurrence: None)
  Receive Date: 20100203
  Receipt Date: 20100118
  Transmission Date: 20100710
  Serious: Yes (Hospitalization)
  Sender: FDA-Public Use
  Company Number: BVT-000465

PATIENT
  Age: 42 Year
  Sex: Male

DRUGS (6)
  1. KINERET [Suspect]
     Indication: STILL'S DISEASE ADULT ONSET
     Dosage: 100 MG QD SUBCUTANEOUS
     Route: 058
     Dates: start: 20090407, end: 20091117
  2. IBUPROFEN [Concomitant]
  3. METHOTREXATE [Concomitant]
  4. CORTANCYL [Concomitant]
  5. PARACETAMOL [Concomitant]
  6. FENSAID [Concomitant]

REACTIONS (2)
  - DEPRESSION [None]
  - DRUG INEFFECTIVE [None]
